FAERS Safety Report 10480844 (Version 1)
Quarter: 2014Q3

REPORT INFORMATION
  Report Type: Spontaneous
  Country: US (occurrence: US)
  Receive Date: 20140929
  Receipt Date: 20140929
  Transmission Date: 20150326
  Serious: Yes (Hospitalization)
  Sender: FDA-Public Use
  Company Number: US-BAYER-2014-141706

PATIENT
  Age: 57 Year
  Sex: Male

DRUGS (3)
  1. MACITENTAN [Concomitant]
     Active Substance: MACITENTAN
  2. BAYER GENUINE ASPIRIN [Suspect]
     Active Substance: ASPIRIN
  3. WARFARIN [Interacting]
     Active Substance: WARFARIN

REACTIONS (2)
  - Gastrointestinal haemorrhage [Unknown]
  - Labelled drug-drug interaction medication error [None]

NARRATIVE: CASE EVENT DATE: 20140909
